FAERS Safety Report 5802684-X (Version None)
Quarter: 2008Q3

REPORT INFORMATION
  Report Type: 
  Country: None (occurrence: None)
  Receive Date: 20080703
  Receipt Date: 20080626
  Transmission Date: 20090109
  Serious: Yes (Hospitalization, Other)
  Sender: FDA-Public Use
  Company Number: E2020-02972-SPO-CN

PATIENT
  Age: 66 Year
  Sex: Female
  Weight: 40 kg

DRUGS (3)
  1. ARICEPT [Suspect]
     Indication: DEMENTIA ALZHEIMER'S TYPE
     Dosage: 5 MG, 1 IN 1 D, ORAL
     Route: 048
     Dates: start: 20080602, end: 20080603
  2. CITALOPRAM HYDROBROMIDE [Suspect]
     Indication: DEPRESSION
     Dosage: 20 MG, ORAL
     Route: 048
     Dates: start: 20080504
  3. CAPTOPRIL [Concomitant]

REACTIONS (4)
  - DRUG INTERACTION [None]
  - HEADACHE [None]
  - HYPERTENSION [None]
  - VOMITING [None]
